FAERS Safety Report 8207814-0 (Version None)
Quarter: 2012Q1

REPORT INFORMATION
  Report Type: 
  Country: None (occurrence: None)
  Receive Date: 20120313
  Receipt Date: 20120313
  Transmission Date: 20120608
  Serious: Yes (Hospitalization)
  Sender: FDA-Public Use
  Company Number: None

PATIENT
  Age: 57 Year
  Sex: Male
  Weight: 104.3273 kg

DRUGS (2)
  1. OLANZAPINE [Suspect]
     Indication: SCHIZOPHRENIA
     Dosage: (2) TABLETS DAILY ORAL
     Route: 048
     Dates: start: 20111110, end: 20111212
  2. OLANZAPINE [Suspect]
     Indication: PARANOIA
     Dosage: (2) TABLETS DAILY ORAL
     Route: 048
     Dates: start: 20111110, end: 20111212

REACTIONS (4)
  - REFUSAL OF TREATMENT BY PATIENT [None]
  - PARANOIA [None]
  - PSYCHOTIC DISORDER [None]
  - PRODUCT SUBSTITUTION ISSUE [None]
